FAERS Safety Report 17207941 (Version 1)
Quarter: 2019Q4

REPORT INFORMATION
  Report Type: Report from Study
  Country: JP (occurrence: JP)
  Receive Date: 20191227
  Receipt Date: 20191227
  Transmission Date: 20200122
  Serious: Yes (Hospitalization)
  Sender: FDA-Public Use
  Company Number: JP-CELGENEUS-JPN-20191209293

PATIENT
  Age: 75 Year
  Sex: Male
  Weight: 52.4 kg

DRUGS (11)
  1. CYRAMZA [Suspect]
     Active Substance: RAMUCIRUMAB
     Dosage: 430 MILLIGRAM
     Route: 041
     Dates: start: 20191203
  2. OMEGA-3-ACID ETHYL ESTER [Concomitant]
     Active Substance: OMEGA-3-ACID ETHYL ESTERS
     Indication: HYPERLIPIDAEMIA
     Dosage: 2 GRAM
     Route: 048
  3. ETIZOLAM [Concomitant]
     Active Substance: ETIZOLAM
     Indication: INSOMNIA
     Dosage: .5 MILLIGRAM
     Route: 048
  4. ABRAXANE [Suspect]
     Active Substance: PACLITAXEL
     Indication: GASTRIC CANCER
     Dosage: 150 MILLIGRAM
     Route: 041
     Dates: start: 20191119
  5. NIFEDIPINE. [Concomitant]
     Active Substance: NIFEDIPINE
     Indication: HYPERTENSION
     Dosage: 10 MILLIGRAM
     Route: 048
  6. BIFIDOBACTERIUM [Concomitant]
     Active Substance: BIFIDOBACTERIUM LONGUM
     Indication: DYSBIOSIS
     Dosage: 3 DOSAGE FORMS
     Route: 048
  7. PANCREATIC ENZYME [Concomitant]
     Indication: DYSPEPSIA
     Dosage: 9 GRAM
     Route: 048
  8. HOCHUEKKITO [Concomitant]
     Active Substance: HERBALS
     Indication: DECREASED APPETITE
     Dosage: 9 DOSAGE FORMS
     Route: 048
  9. ABRAXANE [Suspect]
     Active Substance: PACLITAXEL
     Dosage: 150 MILLIGRAM
     Route: 041
     Dates: start: 20191203
  10. ASPIRIN. [Concomitant]
     Active Substance: ASPIRIN
     Indication: THROMBOSIS PROPHYLAXIS
     Dosage: 100 MILLIGRAM
     Route: 048
  11. CYRAMZA [Suspect]
     Active Substance: RAMUCIRUMAB
     Indication: GASTRIC CANCER
     Dosage: 430 MILLIGRAM
     Route: 041
     Dates: start: 20191119

REACTIONS (1)
  - Enteritis infectious [Recovered/Resolved]

NARRATIVE: CASE EVENT DATE: 20191208
